FAERS Safety Report 16869099 (Version 4)
Quarter: 2024Q3

REPORT INFORMATION
  Report Type: Spontaneous
  Country: FR (occurrence: FR)
  Receive Date: 20190930
  Receipt Date: 20240822
  Transmission Date: 20241017
  Serious: Yes (Death, Other)
  Sender: NOVARTIS
  Company Number: PHHY2019FR226489

PATIENT
  Age: 68 Year
  Sex: Male

DRUGS (5)
  1. ENTRESTO [Suspect]
     Active Substance: SACUBITRIL\VALSARTAN
     Indication: Coronary artery disease
     Dosage: 50 MG, UNK
     Route: 065
     Dates: start: 201901
  2. ENTRESTO [Suspect]
     Active Substance: SACUBITRIL\VALSARTAN
     Dosage: 100 MG, UNK
     Route: 065
  3. ENTRESTO [Suspect]
     Active Substance: SACUBITRIL\VALSARTAN
     Dosage: 200 MG (97/103 MG) (2 TABLETS), BID
     Route: 065
  4. ENTRESTO [Suspect]
     Active Substance: SACUBITRIL\VALSARTAN
     Dosage: UNK (24MG/26MG)
     Route: 065
     Dates: start: 201901
  5. ENTRESTO [Suspect]
     Active Substance: SACUBITRIL\VALSARTAN
     Dosage: UNK (49MG/51MG)
     Route: 065

REACTIONS (13)
  - Myocardial infarction [Fatal]
  - Cardiac failure [Fatal]
  - Oedema [Fatal]
  - Death [Fatal]
  - Craniofacial fracture [Unknown]
  - Nausea [Unknown]
  - Dizziness [Unknown]
  - Blood pressure decreased [Unknown]
  - Diarrhoea [Unknown]
  - N-terminal prohormone brain natriuretic peptide increased [Unknown]
  - Malaise [Unknown]
  - Blood potassium increased [Unknown]
  - Product use in unapproved indication [Unknown]
